FAERS Safety Report 7642220-9 (Version None)
Quarter: 2011Q3

REPORT INFORMATION
  Report Type: 
  Country: None (occurrence: None)
  Receive Date: 20110728
  Receipt Date: 20110714
  Transmission Date: 20111222
  Serious: Yes (Other)
  Sender: FDA-Public Use
  Company Number: PHHY2011US63528

PATIENT
  Sex: Female

DRUGS (1)
  1. TEGRETOL-XR [Suspect]
     Dosage: 200 MG, UNK
     Route: 048

REACTIONS (1)
  - CONVULSION [None]
